FAERS Safety Report 18480090 (Version 2)
Quarter: 2020Q4

REPORT INFORMATION
  Report Type: Spontaneous
  Country: US (occurrence: US)
  Receive Date: 20201109
  Receipt Date: 20201222
  Transmission Date: 20210114
  Serious: No
  Sender: FDA-Public Use
  Company Number: US-NOVITIUMPHARMA-2020USNVP00102

PATIENT
  Age: 79 Year
  Sex: Male

DRUGS (2)
  1. DAPSONE. [Suspect]
     Active Substance: DAPSONE
     Route: 048
  2. DAPSONE. [Suspect]
     Active Substance: DAPSONE
     Indication: DERMATITIS HERPETIFORMIS
     Route: 048

REACTIONS (1)
  - Drug ineffective [Recovering/Resolving]
